FAERS Safety Report 9690360 (Version 1)
Quarter: 2013Q4

REPORT INFORMATION
  Report Type: Report from Study
  Country: BE (occurrence: BE)
  Receive Date: 20131115
  Receipt Date: 20131115
  Transmission Date: 20140711
  Serious: Yes (Death)
  Sender: FDA-Public Use
  Company Number: BE-ASTELLAS-2013EU009995

PATIENT
  Sex: 0

DRUGS (6)
  1. TACROLIMUS SYSTEMIC [Suspect]
     Indication: IMMUNOSUPPRESSION
     Dosage: UNKNOWN/D
     Route: 065
  2. TACROLIMUS SYSTEMIC [Suspect]
     Indication: PANCREAS ISLET CELL TRANSPLANT
  3. MYCOPHENOLATE MOFETIL [Suspect]
     Indication: IMMUNOSUPPRESSION
     Dosage: 1.5 G, UNKNOWN/D
     Route: 065
  4. MYCOPHENOLATE MOFETIL [Suspect]
     Indication: PANCREAS ISLET CELL TRANSPLANT
  5. ANTITHYMOCYTE IMMUNOGLOBULIN [Suspect]
     Indication: IMMUNOSUPPRESSION
     Dosage: UNK
     Route: 065
  6. ANTITHYMOCYTE IMMUNOGLOBULIN [Suspect]
     Indication: PANCREAS ISLET CELL TRANSPLANT

REACTIONS (2)
  - Off label use [Unknown]
  - Cerebral haemorrhage [Fatal]
